FAERS Safety Report 6428234-5 (Version None)
Quarter: 2009Q4

REPORT INFORMATION
  Report Type: 
  Country: None (occurrence: None)
  Receive Date: 20091105
  Receipt Date: 20091026
  Transmission Date: 20100525
  Serious: Yes (Death)
  Sender: FDA-Public Use
  Company Number: JP-BAXTER-2009BH016587

PATIENT
  Age: 30 Year
  Sex: Male
  Weight: 61 kg

DRUGS (9)
  1. HOLOXAN BAXTER [Suspect]
     Indication: MALIGNANT MEDIASTINAL NEOPLASM
     Route: 065
  2. HOLOXAN BAXTER [Suspect]
     Route: 048
     Dates: start: 19970101
  3. BLEOMYCIN GENERIC [Suspect]
     Indication: MALIGNANT MEDIASTINAL NEOPLASM
     Route: 065
  4. ETOPOSIDE [Suspect]
     Indication: MALIGNANT MEDIASTINAL NEOPLASM
     Route: 065
  5. ETOPOSIDE [Suspect]
     Route: 065
  6. CISPLATIN [Suspect]
     Indication: MALIGNANT MEDIASTINAL NEOPLASM
     Route: 065
  7. CISPLATIN [Suspect]
     Route: 048
     Dates: start: 19970101
  8. CISPLATIN [Suspect]
     Route: 065
  9. RADIOTHERAPY [Suspect]
     Indication: MALIGNANT MEDIASTINAL NEOPLASM
     Route: 065

REACTIONS (2)
  - METASTASES TO SPINE [None]
  - METASTATIC NEOPLASM [None]
